FAERS Safety Report 23097062 (Version 1)
Quarter: 2023Q4

REPORT INFORMATION
  Report Type: Spontaneous
  Country: CN (occurrence: CN)
  Receive Date: 20231023
  Receipt Date: 20231023
  Transmission Date: 20240110
  Serious: Yes (Other)
  Sender: FDA-Public Use
  Company Number: CN-PFIZER INC-PV202300174499

PATIENT
  Age: 53 Year
  Sex: Female
  Weight: 51 kg

DRUGS (4)
  1. EPIRUBICIN [Suspect]
     Active Substance: EPIRUBICIN
     Indication: Breast mass
     Dosage: 140 MG, 1X/DAY
     Route: 041
     Dates: start: 20230919, end: 20230919
  2. CYCLOPHOSPHAMIDE [Suspect]
     Active Substance: CYCLOPHOSPHAMIDE
     Indication: Breast mass
     Dosage: 0.8 G, 1X/DAY
     Route: 041
     Dates: start: 20230919, end: 20230919
  3. SODIUM CHLORIDE [Concomitant]
     Active Substance: SODIUM CHLORIDE
     Indication: Breast mass
     Dosage: 100 ML, 1X/DAY
     Route: 041
     Dates: start: 20230919, end: 20230919
  4. SODIUM CHLORIDE [Concomitant]
     Active Substance: SODIUM CHLORIDE
     Dosage: 100 ML, 1X/DAY
     Route: 041
     Dates: start: 20230919, end: 20230919

REACTIONS (1)
  - Renal impairment [Unknown]

NARRATIVE: CASE EVENT DATE: 20230926
